FAERS Safety Report 4519289-3 (Version None)
Quarter: 2004Q4

REPORT INFORMATION
  Report Type: 
  Country: None (occurrence: None)
  Receive Date: 20041201
  Receipt Date: 20041118
  Transmission Date: 20050328
  Serious: Yes (Other)
  Sender: FDA-Public Use
  Company Number: 2004096021

PATIENT
  Sex: Female

DRUGS (2)
  1. NEURONTIN [Suspect]
     Indication: NERVE INJURY
     Dates: start: 20000101
  2. NEURONTIN [Suspect]
     Indication: PAIN
     Dates: start: 20000101

REACTIONS (5)
  - CONVULSION [None]
  - HALLUCINATION [None]
  - HEADACHE [None]
  - LOSS OF CONSCIOUSNESS [None]
  - MEMORY IMPAIRMENT [None]
